FAERS Safety Report 10169098 (Version 2)
Quarter: 2014Q2

REPORT INFORMATION
  Report Type: Report from Study
  Country: JP (occurrence: JP)
  Receive Date: 20140513
  Receipt Date: 20140513
  Transmission Date: 20141212
  Serious: Yes (Hospitalization)
  Sender: FDA-Public Use
  Company Number: JP-SA-2014SA037139

PATIENT
  Age: 14 Year
  Sex: Male
  Weight: 60.8 kg

DRUGS (6)
  1. THYMOGLOBULINE [Suspect]
     Indication: APLASTIC ANAEMIA
     Route: 042
     Dates: start: 20130527, end: 20130531
  2. THYMOGLOBULINE [Suspect]
     Indication: APLASTIC ANAEMIA
     Route: 042
     Dates: start: 20130527, end: 20130531
  3. SOLU-MEDROL [Concomitant]
     Indication: PROPHYLAXIS
     Route: 042
     Dates: start: 20130527, end: 20130609
  4. BAKTAR [Concomitant]
     Indication: INFECTION PROPHYLAXIS
     Route: 048
     Dates: start: 20130527
  5. HALIZON [Concomitant]
     Indication: INFECTION PROPHYLAXIS
     Route: 048
     Dates: start: 20130527
  6. NEORAL [Concomitant]
     Indication: APLASTIC ANAEMIA
     Route: 048
     Dates: start: 20130531

REACTIONS (1)
  - Febrile neutropenia [Recovering/Resolving]
